FAERS Safety Report 6709650-0 (Version None)
Quarter: 2010Q2

REPORT INFORMATION
  Report Type: 
  Country: None (occurrence: None)
  Receive Date: 20100503
  Receipt Date: 20100503
  Transmission Date: 20101027
  Serious: Yes (Other)
  Sender: FDA-Public Use
  Company Number: None

PATIENT
  Age: 28 Month
  Sex: Female
  Weight: 11.3399 kg

DRUGS (2)
  1. CHILDRENS TYLENOL 160MG/5ML MCNEIL-PPC [Suspect]
     Indication: PYREXIA
     Dosage: 5ML EVERY 8-10HR PO
     Route: 048
     Dates: start: 20100428, end: 20100501
  2. CHILDREN'S MOTRIN [Suspect]
     Dosage: 5ML EVERY 6-10HRS
     Dates: start: 20100427, end: 20100430

REACTIONS (2)
  - DRUG INEFFECTIVE [None]
  - VOMITING [None]
